FAERS Safety Report 13646165 (Version 2)
Quarter: 2022Q4

REPORT INFORMATION
  Report Type: Spontaneous
  Country: US (occurrence: US)
  Receive Date: 20170613
  Receipt Date: 20221116
  Transmission Date: 20230113
  Serious: No
  Sender: FDA-Public Use
  Company Number: US-BRISTOL-MYERS SQUIBB COMPANY-BMS-2017-051724

PATIENT
  Age: 61 Year
  Sex: Female

DRUGS (3)
  1. SPRYCEL [Suspect]
     Active Substance: DASATINIB
     Indication: Myeloproliferative neoplasm
     Dosage: 100 MG, QD
     Route: 048
     Dates: start: 20170513
  2. SPRYCEL [Suspect]
     Active Substance: DASATINIB
     Indication: Chronic myeloid leukaemia (in remission)
     Route: 048
     Dates: start: 202001
  3. SPRYCEL [Suspect]
     Active Substance: DASATINIB
     Indication: Chronic myeloid leukaemia

REACTIONS (2)
  - Rash [Unknown]
  - Rash pustular [Unknown]

NARRATIVE: CASE EVENT DATE: 20170524
